FAERS Safety Report 10313689 (Version 3)
Quarter: 2015Q2

REPORT INFORMATION
  Report Type: Spontaneous
  Country: US (occurrence: US)
  Receive Date: 20140718
  Receipt Date: 20150611
  Transmission Date: 20150821
  Serious: Yes (Hospitalization, Other)
  Sender: FDA-Public Use
  Company Number: US-PFIZER INC-2014198508

PATIENT
  Age: 78 Year
  Sex: Female
  Weight: 71.66 kg

DRUGS (2)
  1. REVATIO [Suspect]
     Active Substance: SILDENAFIL CITRATE
     Indication: CARDIAC DISORDER
     Dosage: 20 MG, 3X/DAY
     Route: 048
  2. REVATIO [Suspect]
     Active Substance: SILDENAFIL CITRATE
     Indication: RESPIRATORY DISORDER
     Dosage: 20 MG, 2X/DAY

REACTIONS (6)
  - Cataract [Unknown]
  - Foot fracture [Unknown]
  - Heart rate decreased [Unknown]
  - Hip fracture [Unknown]
  - Bronchitis [Recovering/Resolving]
  - Cardiac failure congestive [Recovering/Resolving]
